FAERS Safety Report 25617575 (Version 2)
Quarter: 2025Q3

REPORT INFORMATION
  Report Type: Spontaneous
  Country: EU (occurrence: EU)
  Receive Date: 20250729
  Receipt Date: 20250806
  Transmission Date: 20251021
  Serious: Yes (Other)
  Sender: AUROBINDO
  Company Number: EU-MLMSERVICE-20250707-PI567651-00152-1

PATIENT
  Age: 23 Year
  Sex: Female

DRUGS (7)
  1. OXALIPLATIN [Suspect]
     Active Substance: OXALIPLATIN
     Indication: Rectal adenocarcinoma
     Route: 065
     Dates: start: 201912
  2. OXALIPLATIN [Suspect]
     Active Substance: OXALIPLATIN
     Dosage: 50 MILLIGRAM/SQ. METER, EVERY WEEK (50 MG/MQ WEEKLY)
     Route: 065
     Dates: start: 202003, end: 202005
  3. FLUOROURACIL [Suspect]
     Active Substance: FLUOROURACIL
     Indication: Rectal adenocarcinoma
     Route: 065
     Dates: start: 201912
  4. FLUOROURACIL [Suspect]
     Active Substance: FLUOROURACIL
     Dosage: 200 MILLIGRAM/SQ. METER, ONCE A DAY (200 MG/MQ FOR 5 DAYS)
     Route: 065
     Dates: start: 202003, end: 202005
  5. PANITUMUMAB [Suspect]
     Active Substance: PANITUMUMAB
     Indication: Rectal adenocarcinoma
     Route: 065
     Dates: start: 201912, end: 202003
  6. LEUCOVORIN [Concomitant]
     Active Substance: LEUCOVORIN\LEUCOVORIN CALCIUM
     Indication: Rectal adenocarcinoma
     Route: 065
     Dates: start: 201912
  7. IRINOTECAN [Concomitant]
     Active Substance: IRINOTECAN
     Indication: Rectal adenocarcinoma
     Route: 065
     Dates: start: 201912

REACTIONS (14)
  - Premature menopause [Not Recovered/Not Resolved]
  - Vitamin D deficiency [Unknown]
  - Arthralgia [Unknown]
  - Metabolic disorder [Unknown]
  - Menopausal symptoms [Unknown]
  - Endocrine disorder [Unknown]
  - Diarrhoea [Unknown]
  - Fatigue [Unknown]
  - Alopecia [Unknown]
  - Vomiting [Unknown]
  - Amenorrhoea [Not Recovered/Not Resolved]
  - Headache [Unknown]
  - Body mass index increased [Unknown]
  - Skin striae [Unknown]

NARRATIVE: CASE EVENT DATE: 20200101
